FAERS Safety Report 10728774 (Version 1)
Quarter: 2015Q1

REPORT INFORMATION
  Report Type: Spontaneous
  Country: US (occurrence: US)
  Receive Date: 20150122
  Receipt Date: 20150122
  Transmission Date: 20150721
  Serious: No
  Sender: FDA-Public Use
  Company Number: US-009507513-1501USA002553

PATIENT
  Age: 16 Year
  Sex: Female
  Weight: 58.5 kg

DRUGS (1)
  1. IMPLANON [Suspect]
     Active Substance: ETONOGESTREL
     Indication: CONTRACEPTION
     Dosage: 1 ROD, LEFT ARM
     Route: 059
     Dates: start: 20131219, end: 20150105

REACTIONS (4)
  - Device kink [Recovered/Resolved]
  - Breast tenderness [Not Recovered/Not Resolved]
  - Breast swelling [Not Recovered/Not Resolved]
  - Breast fibrosis [Not Recovered/Not Resolved]

NARRATIVE: CASE EVENT DATE: 201412
